FAERS Safety Report 5711388-3 (Version None)
Quarter: 2008Q2

REPORT INFORMATION
  Report Type: 
  Country: None (occurrence: None)
  Receive Date: 20080421
  Receipt Date: 20080412
  Transmission Date: 20081010
  Serious: Yes (Hospitalization)
  Sender: FDA-Public Use
  Company Number: GB-ROCHE-558928

PATIENT
  Sex: Female
  Weight: 73 kg

DRUGS (4)
  1. ORLISTAT [Suspect]
     Indication: OBESITY
     Route: 048
     Dates: start: 20070615
  2. LEVOTHYROXINE SODIUM [Concomitant]
     Indication: HYPOTHYROIDISM
     Dosage: REPORTED AS LEVELL THYROXINE
     Route: 048
     Dates: start: 20070101
  3. TOLTERODINE TARTRATE [Concomitant]
     Dosage: REPORTED AS DETRSITOL XL
     Route: 048
     Dates: start: 20010101
  4. RABEPRAZOLE SODIUM [Concomitant]
     Indication: HIATUS HERNIA
     Route: 048

REACTIONS (1)
  - FOOT FRACTURE [None]
